FAERS Safety Report 4980216-6 (Version None)
Quarter: 2006Q2

REPORT INFORMATION
  Report Type: 
  Country: None (occurrence: None)
  Receive Date: 20060424
  Receipt Date: 20060410
  Transmission Date: 20061013
  Serious: Yes (Hospitalization)
  Sender: FDA-Public Use
  Company Number: FR-SOLVAY-00206001251

PATIENT
  Age: 79 Year
  Sex: Female
  Weight: 72 kg

DRUGS (8)
  1. COVERSYL [Suspect]
     Indication: CARDIAC FAILURE
     Dosage: DAILY DOSE: 2 MILLIGRAM(S)
     Route: 048
     Dates: end: 20060222
  2. NEXIUM [Concomitant]
     Indication: ILL-DEFINED DISORDER
     Dosage: DAILY DOSE:  UNKNOWN
     Route: 065
  3. LASILIX [Interacting]
     Indication: LYMPHOEDEMA
     Dosage: DAILY DOSE: 80 MILLIGRAM(S)
     Route: 048
     Dates: start: 20051230, end: 20060222
  4. LASILIX [Interacting]
     Dosage: DAILY DOSE: 60 MILLIGRAM(S)
     Route: 048
     Dates: start: 20060101
  5. DIFFU K [Interacting]
     Indication: ILL-DEFINED DISORDER
     Dosage: DAILY DOSE: 3 DOSAGE FORM
     Route: 048
     Dates: end: 20060222
  6. DIFFU K [Interacting]
     Dosage: DAILY DOSE: 3 DOSAGE FORM
     Route: 048
     Dates: start: 20060101
  7. PREVISCAN [Interacting]
     Indication: ILL-DEFINED DISORDER
     Dosage: DAILY DOSE:  UNKNOWN
     Route: 048
     Dates: end: 20060222
  8. PREVISCAN [Interacting]
     Dosage: DAILY DOSE:  UNKNOWN
     Route: 048
     Dates: start: 20060101

REACTIONS (11)
  - ASTHENIA [None]
  - CYANOSIS [None]
  - DEHYDRATION [None]
  - DRUG INTERACTION [None]
  - GAIT DISTURBANCE [None]
  - GENERAL PHYSICAL HEALTH DETERIORATION [None]
  - GENERALISED OEDEMA [None]
  - HYPERKALAEMIA [None]
  - HYPOTHERMIA [None]
  - OVERDOSE [None]
  - RENAL FAILURE [None]
